FAERS Safety Report 8624960-8 (Version None)
Quarter: 2012Q3

REPORT INFORMATION
  Report Type: 
  Country: None (occurrence: None)
  Receive Date: 20120827
  Receipt Date: 20120821
  Transmission Date: 20120928
  Serious: Yes (Other)
  Sender: FDA-Public Use
  Company Number: KR-US-EMD SERONO, INC.-7156232

PATIENT
  Sex: Female
  Weight: 35 kg

DRUGS (1)
  1. SAIZEN [Suspect]
     Indication: GROWTH RETARDATION
     Route: 058
     Dates: start: 20111102, end: 20120806

REACTIONS (1)
  - CONGENITAL APLASTIC ANAEMIA [None]
